FAERS Safety Report 15325504 (Version 1)
Quarter: 2018Q3

REPORT INFORMATION
  Report Type: Spontaneous
  Country: SA (occurrence: SA)
  Receive Date: 20180828
  Receipt Date: 20180828
  Transmission Date: 20181010
  Serious: Yes (Hospitalization)
  Sender: FDA-Public Use
  Company Number: SA-MYLANLABS-2018M1063561

PATIENT
  Age: 20 Year
  Sex: Male

DRUGS (5)
  1. METHYLPREDNISOLONE. [Suspect]
     Active Substance: METHYLPREDNISOLONE
     Indication: ACUTE DISSEMINATED ENCEPHALOMYELITIS
     Dosage: FOR 5 DAYS
     Route: 042
  2. PREDNISOLONE. [Suspect]
     Active Substance: PREDNISOLONE
     Indication: ACUTE DISSEMINATED ENCEPHALOMYELITIS
     Dosage: FOR 2?3 MONTHS
     Route: 065
  3. QUETIAPINE. [Concomitant]
     Active Substance: QUETIAPINE
     Indication: ANXIETY
  4. QUETIAPINE. [Concomitant]
     Active Substance: QUETIAPINE
     Indication: DEPRESSION
     Route: 065
  5. LEVETIRACETAM. [Concomitant]
     Active Substance: LEVETIRACETAM
     Indication: GENERALISED TONIC-CLONIC SEIZURE
     Dosage: GRADUALLY INCREASING DOSES TO A TOTAL OF 2000 MG PER DAY
     Route: 065

REACTIONS (2)
  - Symptom masked [Unknown]
  - Histiocytosis haematophagic [Unknown]
